FAERS Safety Report 11248742 (Version 1)
Quarter: 2015Q3

REPORT INFORMATION
  Report Type: Spontaneous
  Country: US (occurrence: US)
  Receive Date: 20150708
  Receipt Date: 20150708
  Transmission Date: 20151125
  Serious: No
  Sender: FDA-Public Use
  Company Number: US-ELI_LILLY_AND_COMPANY-US201009000265

PATIENT
  Sex: Female

DRUGS (2)
  1. PROZAC [Suspect]
     Active Substance: FLUOXETINE HYDROCHLORIDE
     Indication: ANXIETY DISORDER DUE TO A GENERAL MEDICAL CONDITION
     Dosage: 20 MG, DAILY (1/D)
  2. TENORMIN [Concomitant]
     Active Substance: ATENOLOL

REACTIONS (6)
  - Actinic keratosis [Unknown]
  - Skin ulcer [Recovering/Resolving]
  - Wound complication [Unknown]
  - Thrombocytopenia [Unknown]
  - Skin injury [Recovering/Resolving]
  - Off label use [Not Recovered/Not Resolved]
